FAERS Safety Report 23733188 (Version 3)
Quarter: 2024Q2

REPORT INFORMATION
  Report Type: Report from Study
  Country: VN (occurrence: VN)
  Receive Date: 20240411
  Receipt Date: 20240527
  Transmission Date: 20240716
  Serious: Yes (Death, Hospitalization, Other)
  Sender: FDA-Public Use
  Company Number: VN-002147023-NVSC2024VN070209

PATIENT

DRUGS (2)
  1. RUXOLITINIB [Suspect]
     Active Substance: RUXOLITINIB
     Indication: Myelofibrosis
     Dosage: 20 MG, BID
     Route: 065
  2. RUXOLITINIB [Suspect]
     Active Substance: RUXOLITINIB
     Dosage: 15 MG, BID
     Route: 065

REACTIONS (6)
  - Fatigue [Unknown]
  - Infection [Fatal]
  - Arthralgia [Unknown]
  - Mental disorder [Fatal]
  - Multiple organ dysfunction syndrome [Fatal]
  - Acute leukaemia [Unknown]

NARRATIVE: CASE EVENT DATE: 20240201
